FAERS Safety Report 11169658 (Version 1)
Quarter: 2015Q2

REPORT INFORMATION
  Report Type: Spontaneous
  Country: TR (occurrence: TR)
  Receive Date: 20150605
  Receipt Date: 20150605
  Transmission Date: 20150821
  Serious: Yes (Hospitalization)
  Sender: FDA-Public Use
  Company Number: TR-JNJFOC-2007322184

PATIENT
  Age: 9 Month
  Sex: Female

DRUGS (2)
  1. ACETAMINOPHEN. [Suspect]
     Active Substance: ACETAMINOPHEN
     Indication: VOMITING
     Dosage: DAILY DOSE TEXT: UNSPECIFIED THERAPEUTIC DOSES
     Route: 065
  2. ACETAMINOPHEN. [Suspect]
     Active Substance: ACETAMINOPHEN
     Indication: MALAISE
     Dosage: DAILY DOSE TEXT: UNSPECIFIED THERAPEUTIC DOSES
     Route: 065

REACTIONS (8)
  - Toxicity to various agents [Unknown]
  - Laboratory test abnormal [Not Recovered/Not Resolved]
  - Metabolic acidosis [Not Recovered/Not Resolved]
  - Reticulocytosis [Unknown]
  - Blood lactic acid increased [Unknown]
  - Hepatotoxicity [Unknown]
  - Diarrhoea [Unknown]
  - Normochromic normocytic anaemia [Unknown]
